FAERS Safety Report 23159828 (Version 2)
Quarter: 2023Q4

REPORT INFORMATION
  Report Type: Report from Study
  Country: CA (occurrence: CA)
  Receive Date: 20231108
  Receipt Date: 20231128
  Transmission Date: 20240109
  Serious: Yes (Death, Other)
  Sender: FDA-Public Use
  Company Number: CA-AstraZeneca-2023A248855

PATIENT
  Sex: Female

DRUGS (1)
  1. ENHERTU [Suspect]
     Active Substance: FAM-TRASTUZUMAB DERUXTECAN-NXKI
     Indication: HER2 negative breast cancer
     Dosage: 438.48 MG, ONCE EVERY 3 WK
     Route: 042
     Dates: start: 20231013

REACTIONS (1)
  - Death [Fatal]
